FAERS Safety Report 10736682 (Version 1)
Quarter: 2015Q1

REPORT INFORMATION
  Report Type: Spontaneous
  Country: US (occurrence: None)
  Receive Date: 20150123
  Receipt Date: 20150123
  Transmission Date: 20150721
  Serious: Yes (Life-Threatening)
  Sender: FDA-Public Use
  Company Number: None

PATIENT
  Age: 66 Year
  Sex: Male
  Weight: 104 kg

DRUGS (2)
  1. ATORVASTATIN [Suspect]
     Active Substance: ATORVASTATIN
     Indication: HYPERLIPIDAEMIA
     Route: 048
     Dates: start: 20130619, end: 20141105
  2. RITONAVIR. [Suspect]
     Active Substance: RITONAVIR
     Indication: HIV INFECTION
     Dosage: ~11/18/2010 THRU
     Route: 048
     Dates: start: 20101118

REACTIONS (4)
  - Acute kidney injury [None]
  - Dialysis [None]
  - Bronchitis [None]
  - Rhabdomyolysis [None]

NARRATIVE: CASE EVENT DATE: 20141105
